FAERS Safety Report 5315258-4 (Version None)
Quarter: 2007Q2

REPORT INFORMATION
  Report Type: 
  Country: None (occurrence: None)
  Receive Date: 20070502
  Receipt Date: 20070420
  Transmission Date: 20071010
  Serious: Yes (Hospitalization, Other)
  Sender: FDA-Public Use
  Company Number: US-PFIZER INC-2007031766

PATIENT
  Sex: Female
  Weight: 70.454 kg

DRUGS (3)
  1. LYRICA [Suspect]
     Indication: ABDOMINAL PAIN
     Dates: start: 20070403, end: 20070419
  2. MIRAPEX [Concomitant]
  3. SINEMET [Concomitant]

REACTIONS (10)
  - ABDOMINAL DISTENSION [None]
  - AMNESIA [None]
  - BLOOD PRESSURE DECREASED [None]
  - CONFUSIONAL STATE [None]
  - CONSTIPATION [None]
  - DEMENTIA [None]
  - DIZZINESS [None]
  - HYPOAESTHESIA [None]
  - NAUSEA [None]
  - THINKING ABNORMAL [None]
